FAERS Safety Report 11754333 (Version 1)
Quarter: 2015Q4

REPORT INFORMATION
  Report Type: Spontaneous
  Country: US (occurrence: None)
  Receive Date: 20151118
  Receipt Date: 20151118
  Transmission Date: 20160304
  Serious: Yes (Hospitalization)
  Sender: FDA-Public Use
  Company Number: None

PATIENT
  Age: 64 Year
  Sex: Male

DRUGS (1)
  1. IBUPROFEN. [Suspect]
     Active Substance: IBUPROFEN
     Indication: ARTHRITIS
     Route: 048
     Dates: start: 20091201, end: 20100111

REACTIONS (8)
  - Cardiac arrest [None]
  - Hypotension [None]
  - Cardiogenic shock [None]
  - Bradycardia [None]
  - Dyspnoea [None]
  - Acute kidney injury [None]
  - Weight increased [None]
  - Cardiac failure congestive [None]

NARRATIVE: CASE EVENT DATE: 20100105
